FAERS Safety Report 11260511 (Version 1)
Quarter: 2015Q3

REPORT INFORMATION
  Report Type: Spontaneous
  Country: CA (occurrence: CA)
  Receive Date: 20150710
  Receipt Date: 20150710
  Transmission Date: 20151125
  Serious: Yes (Other)
  Sender: FDA-Public Use
  Company Number: CA-HOSPIRA-2776562

PATIENT
  Age: 73 Year
  Sex: Female
  Weight: 67 kg

DRUGS (11)
  1. TRASTUZUMAB [Suspect]
     Active Substance: TRASTUZUMAB
     Indication: UTERINE CANCER
     Route: 042
  2. BENADRYL [Suspect]
     Active Substance: DIPHENHYDRAMINE HYDROCHLORIDE
     Indication: PRODUCT USED FOR UNKNOWN INDICATION
     Dosage: NOT REPORTED
     Route: 048
  3. CARBOPLATIN. [Suspect]
     Active Substance: CARBOPLATIN
     Indication: UTERINE CANCER
     Dosage: NOT REPORTED
     Route: 042
  4. TAXOL [Suspect]
     Active Substance: PACLITAXEL
     Indication: UTERINE CANCER
     Dosage: NOT REPORTED
     Route: 042
  5. REACTINE                           /00884302/ [Concomitant]
     Active Substance: CETIRIZINE HYDROCHLORIDE
     Indication: PRODUCT USED FOR UNKNOWN INDICATION
     Dosage: NOT REPORTED
  6. TYLENOL [Concomitant]
     Active Substance: ACETAMINOPHEN
     Indication: PRODUCT USED FOR UNKNOWN INDICATION
     Dosage: NOT REPORTED
     Route: 048
  7. TRASTUZUMAB [Suspect]
     Active Substance: TRASTUZUMAB
     Indication: UTERINE CANCER
     Route: 042
  8. FLUTICASONE PROPIONATE W/SALMETEROL XINAFOATE [Concomitant]
     Active Substance: FLUTICASONE PROPIONATE\SALMETEROL XINAFOATE
     Indication: PRODUCT USED FOR UNKNOWN INDICATION
     Dosage: NOT REPORTED
     Route: 065
  9. NUTROPIN [Suspect]
     Active Substance: SOMATROPIN
     Indication: WHITE BLOOD CELL COUNT DECREASED
     Dosage: NOT REPORTED
     Route: 065
  10. DEXAMETHASONE. [Concomitant]
     Active Substance: DEXAMETHASONE
     Indication: PRODUCT USED FOR UNKNOWN INDICATION
     Dosage: NOT REPORTED
  11. EMEND [Concomitant]
     Active Substance: APREPITANT
     Indication: PRODUCT USED FOR UNKNOWN INDICATION
     Dosage: NOT REPORTED

REACTIONS (11)
  - Fatigue [Not Recovered/Not Resolved]
  - Neuralgia [Not Recovered/Not Resolved]
  - Dyspnoea [Not Recovered/Not Resolved]
  - Nasopharyngitis [Not Recovered/Not Resolved]
  - Seasonal allergy [Not Recovered/Not Resolved]
  - Off label use [Not Recovered/Not Resolved]
  - Oral herpes [Not Recovered/Not Resolved]
  - White blood cell count decreased [Not Recovered/Not Resolved]
  - Cough [Not Recovered/Not Resolved]
  - Anaemia [Not Recovered/Not Resolved]
  - Dizziness [Not Recovered/Not Resolved]
